FAERS Safety Report 4370898-4 (Version None)
Quarter: 2004Q2

REPORT INFORMATION
  Report Type: 
  Country: None (occurrence: None)
  Receive Date: 20040601
  Receipt Date: 20040519
  Transmission Date: 20050107
  Serious: Yes (Death)
  Sender: FDA-Public Use
  Company Number: F01200401189

PATIENT
  Age: 75 Year
  Sex: Male

DRUGS (4)
  1. OXALIPLATIN [Suspect]
     Indication: COLORECTAL CANCER
     Dosage: 85 MG/M2 Q2W, INTRAVENOUS NOS
     Route: 042
     Dates: start: 20040504, end: 20040504
  2. FLUOROURACIL [Suspect]
     Dosage: 500 MG/M2 BOLUS ON D, D8 AND D15, Q4W, INTRAVENOUS NOS
     Route: 042
     Dates: start: 20040504, end: 20040504
  3. LEUCOVORIN CALCIUM [Suspect]
     Dosage: 20 MG/M2 ON D1, D8 AND D15, Q4W, INTRAVENOUS NOS)
     Route: 042
     Dates: start: 20040504, end: 20040504
  4. AVASTIN [Suspect]
     Dosage: 5 MG/KG OVER 30-90 MINUTES IV INFUSION ON DAY 1, 15, Q4W, INTRAVENOUS NOS
     Route: 042
     Dates: start: 20040405, end: 20040504

REACTIONS (1)
  - DIARRHOEA [None]
